FAERS Safety Report 6391698-X (Version None)
Quarter: 2009Q4

REPORT INFORMATION
  Report Type: 
  Country: None (occurrence: None)
  Receive Date: 20091007
  Receipt Date: 20090804
  Transmission Date: 20100525
  Serious: No
  Sender: FDA-Public Use
  Company Number: US-BAYER-200929384NA

PATIENT
  Age: 15 Year
  Sex: Female

DRUGS (3)
  1. MIRENA [Suspect]
     Indication: DYSMENORRHOEA
     Dosage: CONTINUOUS DELIVERY
     Route: 015
     Dates: start: 20090601, end: 20090601
  2. MIRENA [Suspect]
     Route: 015
     Dates: start: 20090728, end: 20090817
  3. VALIUM [Concomitant]
     Dates: start: 20090728, end: 20090728

REACTIONS (3)
  - ABDOMINAL PAIN [None]
  - PROCEDURAL PAIN [None]
  - VAGINAL HAEMORRHAGE [None]
